FAERS Safety Report 6368910-6 (Version None)
Quarter: 2009Q3

REPORT INFORMATION
  Report Type: 
  Country: None (occurrence: None)
  Receive Date: 20090917
  Receipt Date: 20090917
  Transmission Date: 20100115
  Serious: Yes (Death)
  Sender: FDA-Public Use
  Company Number: None

PATIENT
  Age: 23 Year
  Sex: Male
  Weight: 69.5 kg

DRUGS (1)
  1. OMNIPAQUE 300 [Suspect]
     Indication: SCAN WITH CONTRAST
     Dosage: 145 ML GIVEN ONE TIME IV
     Route: 042

REACTIONS (6)
  - ANXIETY [None]
  - APNOEA [None]
  - CARDIO-RESPIRATORY ARREST [None]
  - DYSPNOEA [None]
  - NO THERAPEUTIC RESPONSE [None]
  - PULSE ABSENT [None]
